FAERS Safety Report 5410084-X (Version None)
Quarter: 2007Q3

REPORT INFORMATION
  Report Type: 
  Country: None (occurrence: None)
  Receive Date: 20070713
  Receipt Date: 20070410
  Transmission Date: 20080115
  Serious: No
  Sender: FDA-Public Use
  Company Number: 2007SP001276

PATIENT
  Age: 53 Year
  Sex: Female
  Weight: 92.9874 kg

DRUGS (4)
  1. LUNESTA [Suspect]
     Indication: INSOMNIA
     Dosage: 2 MG;HS;ORAL
     Route: 048
     Dates: start: 20070401
  2. PLAQUINOL [Concomitant]
  3. PREDNISONE TAB [Concomitant]
  4. TYLENOL (CAPLET) [Concomitant]

REACTIONS (1)
  - INSOMNIA [None]
